FAERS Safety Report 18195591 (Version 2)
Quarter: 2020Q3

REPORT INFORMATION
  Report Type: Report from Study
  Country: CA (occurrence: CA)
  Receive Date: 20200826
  Receipt Date: 20200907
  Transmission Date: 20201103
  Serious: Yes (Hospitalization)
  Sender: FDA-Public Use
  Company Number: CA-ROCHE-2663136

PATIENT
  Age: 40 Year
  Sex: Female
  Weight: 53.9 kg

DRUGS (3)
  1. ATEZOLIZUMAB. [Suspect]
     Active Substance: ATEZOLIZUMAB
     Indication: TRIPLE NEGATIVE BREAST CANCER
     Dosage: ON 29/JUL/2020, SHE RECEIVED THE LAST DOSE OF ATEZOLIZUMAB 1200 MG
     Route: 042
     Dates: start: 20200618
  2. HYDROCORTISONE. [Concomitant]
     Active Substance: HYDROCORTISONE
     Dosage: 1% PRN
     Dates: start: 2012
  3. TETRAHYDROCANNABINOL [Concomitant]
     Active Substance: DRONABINOL
     Dates: start: 20200507

REACTIONS (1)
  - Hyperthyroidism [Recovered/Resolved]

NARRATIVE: CASE EVENT DATE: 20200817
